FAERS Safety Report 6748882-2 (Version None)
Quarter: 2010Q2

REPORT INFORMATION
  Report Type: 
  Country: None (occurrence: None)
  Receive Date: 20100601
  Receipt Date: 20100524
  Transmission Date: 20101027
  Serious: Yes (Hospitalization)
  Sender: FDA-Public Use
  Company Number: US-ELI_LILLY_AND_COMPANY-US201005006497

PATIENT
  Sex: Female

DRUGS (5)
  1. HUMULIN R [Suspect]
     Dosage: 3 U, 4/D
     Dates: start: 20080101
  2. HUMULIN R [Suspect]
     Dosage: 3 U, 4/D
     Dates: start: 20080101
  3. LANTUS [Concomitant]
  4. ASPIRIN [Concomitant]
  5. GLIPIZIDE [Concomitant]

REACTIONS (6)
  - DIABETES MELLITUS INADEQUATE CONTROL [None]
  - DRUG DOSE OMISSION [None]
  - INTENTIONAL DRUG MISUSE [None]
  - PARAESTHESIA [None]
  - URINARY TRACT INFECTION [None]
  - URTICARIA [None]
